FAERS Safety Report 7986835-7 (Version None)
Quarter: 2011Q4

REPORT INFORMATION
  Report Type: 
  Country: None (occurrence: None)
  Receive Date: 20111216
  Receipt Date: 20111006
  Transmission Date: 20120403
  Serious: Yes (Other)
  Sender: FDA-Public Use
  Company Number: US-BRISTOL-MYERS SQUIBB COMPANY-16027328

PATIENT
  Age: 48 Year
  Sex: Female
  Weight: 77 kg

DRUGS (4)
  1. ABILIFY [Suspect]
     Indication: ANXIETY
     Dosage: STARTED 5 MONTHS AGO RESTARTED 4WKS AGO
     Route: 048
     Dates: start: 20110511
  2. ABILIFY [Suspect]
     Indication: DEPRESSION
     Dosage: STARTED 5 MONTHS AGO RESTARTED 4WKS AGO
     Route: 048
     Dates: start: 20110511
  3. CYMBALTA [Concomitant]
  4. HYDROCORTISONE [Concomitant]
     Dosage: STARTED WITH 20MG

REACTIONS (1)
  - INSOMNIA [None]
